FAERS Safety Report 5594874-9 (Version None)
Quarter: 2007Q4

REPORT INFORMATION
  Report Type: 
  Country: None (occurrence: None)
  Receive Date: 20071218
  Receipt Date: 20070712
  Transmission Date: 20080405
  Serious: Yes (Hospitalization)
  Sender: FDA-Public Use
  Company Number: 2007031664

PATIENT
  Age: 52 Year
  Sex: Female
  Weight: 77.1 kg

DRUGS (4)
  1. BEXTRA [Suspect]
     Indication: PAIN
     Dosage: 10 MG (10 MG,1 IN 1 D),ORAL
     Route: 048
     Dates: start: 20020501
  2. VIOXX [Suspect]
     Indication: PAIN IN EXTREMITY
     Dosage: 25 MG (25 MG,1 IN 1 D),ORAL
     Route: 048
     Dates: start: 20020227, end: 20020701
  3. ACETYLSALICYLIC ACID SRT [Concomitant]
  4. IBUPROFEN [Concomitant]

REACTIONS (1)
  - MYOCARDIAL INFARCTION [None]
